FAERS Safety Report 5304938-2 (Version None)
Quarter: 2007Q2

REPORT INFORMATION
  Report Type: 
  Country: None (occurrence: None)
  Receive Date: 20070423
  Receipt Date: 20070413
  Transmission Date: 20071010
  Serious: Yes (Hospitalization, Other)
  Sender: FDA-Public Use
  Company Number: US-SHR-US-2007-013063

PATIENT
  Age: 57 Year
  Sex: Female

DRUGS (3)
  1. LEUKINE [Suspect]
     Indication: OVARIAN CANCER RECURRENT
     Dosage: 400 UG, 6 7-DAY CYCLES
     Route: 058
     Dates: start: 20070122, end: 20070406
  2. CARBOPLATIN [Suspect]
     Indication: OVARIAN CANCER RECURRENT
     Dosage: AUC =5, 3 DOSES
     Route: 042
     Dates: start: 20070130, end: 20070330
  3. INTERFERON GAMMA [Suspect]
     Indication: OVARIAN CANCER RECURRENT
     Dosage: 0.1 MG, 12 TOTAL DOSES
     Route: 058
     Dates: start: 20070126, end: 20070406

REACTIONS (4)
  - BLOOD CHOLESTEROL INCREASED [None]
  - CHEST PAIN [None]
  - MYOCARDIAL INFARCTION [None]
  - VENOUS OCCLUSION [None]
